FAERS Safety Report 4895782-9 (Version None)
Quarter: 2006Q1

REPORT INFORMATION
  Report Type: 
  Country: None (occurrence: None)
  Receive Date: 20060124
  Receipt Date: 20051208
  Transmission Date: 20060701
  Serious: Yes (Other)
  Sender: FDA-Public Use
  Company Number: 2006BH000376

PATIENT
  Age: 81 Year
  Sex: Male

DRUGS (9)
  1. IMMUNE GLOBULIN INTRAVENOUS (HUMAN) [Suspect]
     Indication: TOXIC EPIDERMAL NECROLYSIS
     Dosage: 0.5 G/KG; EVERY DAY; IV
     Route: 042
  2. HYDROCHLOROTHIAZIDE [Concomitant]
  3. METOPROLOL [Concomitant]
  4. ATORVASTATIN CALCIUM [Concomitant]
  5. LEVOTHYROXINE SODIUM [Concomitant]
  6. RANITIDINE [Concomitant]
  7. PREDNISONE [Concomitant]
  8. ALLOPURINOL [Concomitant]
  9. CYCLOSPORINE [Concomitant]

REACTIONS (7)
  - ACUTE MYOCARDIAL INFARCTION [None]
  - GOUTY ARTHRITIS [None]
  - HYPOTHERMIA [None]
  - INFUSION RELATED REACTION [None]
  - PULMONARY OEDEMA [None]
  - UPPER RESPIRATORY TRACT INFECTION [None]
  - URINARY TRACT INFECTION [None]
